FAERS Safety Report 4433612-X (Version None)
Quarter: 2004Q3

REPORT INFORMATION
  Report Type: 
  Country: None (occurrence: None)
  Receive Date: 20040825
  Receipt Date: 20040825
  Transmission Date: 20050211
  Serious: Yes (Hospitalization)
  Sender: FDA-Public Use
  Company Number: None

PATIENT
  Age: 49 Year
  Sex: Female

DRUGS (8)
  1. ZOCOR [Suspect]
     Indication: BLOOD CHOLESTEROL INCREASED
     Dosage: 80 MG PO Q DAY
     Route: 048
  2. METFORMIN HCL [Concomitant]
  3. HYDROCHLOROTHIAZIDE [Concomitant]
  4. AVANDIA [Concomitant]
  5. ASPIRIN [Concomitant]
  6. LOPID [Concomitant]
  7. LASIX [Concomitant]
  8. VASOTEC [Concomitant]

REACTIONS (1)
  - RHABDOMYOLYSIS [None]
